FAERS Safety Report 7539429-1 (Version None)
Quarter: 2011Q2

REPORT INFORMATION
  Report Type: 
  Country: None (occurrence: None)
  Receive Date: 20110610
  Receipt Date: 20110530
  Transmission Date: 20111010
  Serious: Yes (Hospitalization)
  Sender: FDA-Public Use
  Company Number: FR-PFIZER INC-2011125157

PATIENT
  Age: 67 Year
  Sex: Female

DRUGS (15)
  1. METHYLPREDNISOLONE [Suspect]
     Indication: PREMEDICATION
     Dosage: 120 MG, UNK
     Route: 042
     Dates: start: 20110504, end: 20110504
  2. LEVOTHYROXINE SODIUM [Concomitant]
  3. NEXIUM [Concomitant]
  4. KIDROLASE [Suspect]
     Indication: ACUTE LYMPHOCYTIC LEUKAEMIA
     Dosage: 19 KU-DAILY
     Route: 041
     Dates: start: 20110504, end: 20110504
  5. VALACYCLOVIR HYDROCHLORIDE [Concomitant]
  6. ATARAX [Suspect]
     Indication: PREMEDICATION
     Dosage: 25 MG, 2X/DAY
     Route: 048
     Dates: start: 20110504, end: 20110504
  7. PERINDOPRIL [Concomitant]
  8. ATORVASTATIN [Concomitant]
  9. FOLIC ACID [Concomitant]
  10. DRIPTANE [Concomitant]
  11. KYTRIL [Suspect]
     Indication: PREMEDICATION
     Dosage: 2 MG, 1X/DAY
     Route: 048
     Dates: start: 20110504, end: 20110504
  12. METFORMIN [Concomitant]
  13. METHOTREXATE [Concomitant]
     Dosage: UNK
     Dates: start: 20110503
  14. NICARDIPINE HCL [Suspect]
     Indication: HYPERTENSION
     Dosage: 20 MG, 1X/DAY
     Route: 048
     Dates: start: 20110504, end: 20110504
  15. ATENOLOL [Concomitant]

REACTIONS (5)
  - ACUTE PULMONARY OEDEMA [None]
  - MALAISE [None]
  - DYSPNOEA [None]
  - ERYTHEMA [None]
  - PRURITUS [None]
